FAERS Safety Report 11587749 (Version 6)
Quarter: 2016Q1

REPORT INFORMATION
  Report Type: Report from Study
  Country: GB (occurrence: GB)
  Receive Date: 20151001
  Receipt Date: 20160316
  Transmission Date: 20160525
  Serious: Yes (Hospitalization, Other)
  Sender: FDA-Public Use
  Company Number: GB-ABBVIE-15P-167-1474014-00

PATIENT
  Age: 51 Year
  Sex: Male

DRUGS (1)
  1. HUMIRA [Suspect]
     Active Substance: ADALIMUMAB
     Indication: CROHN^S DISEASE
     Route: 058
     Dates: start: 20150827, end: 20160218

REACTIONS (7)
  - Epilepsy [Recovered/Resolved]
  - Fatigue [Unknown]
  - Epilepsy [Unknown]
  - Epilepsy [Unknown]
  - Malaise [Unknown]
  - Lethargy [Unknown]
  - Pyrexia [Unknown]

NARRATIVE: CASE EVENT DATE: 20150923
